FAERS Safety Report 10143446 (Version 1)
Quarter: 2014Q2

REPORT INFORMATION
  Report Type: Report from Study
  Country: KR (occurrence: KR)
  Receive Date: 20140430
  Receipt Date: 20140430
  Transmission Date: 20141212
  Serious: Yes (Death)
  Sender: FDA-Public Use
  Company Number: KR-SA-2014SA056199

PATIENT
  Sex: Male

DRUGS (3)
  1. PREDNISOLONE [Suspect]
     Indication: PROSTATE CANCER METASTATIC
     Route: 048
  2. OXALIPLATIN [Suspect]
     Indication: PROSTATE CANCER METASTATIC
     Dosage: 2 H INTRAVENOUS INFUSION ADMINISTERED ON DAY 1
     Route: 042
  3. GEMCITABINE [Suspect]
     Indication: PROSTATE CANCER METASTATIC
     Dosage: DRUG WAS ADMINISTERED AT A FIXED DOSE RATE: 10 MG/M2 PER MINUTE
     Route: 042

REACTIONS (1)
  - Pneumonia viral [Fatal]
